FAERS Safety Report 7684992-3 (Version None)
Quarter: 2011Q3

REPORT INFORMATION
  Report Type: 
  Country: None (occurrence: None)
  Receive Date: 20110816
  Receipt Date: 20110815
  Transmission Date: 20111222
  Serious: No
  Sender: FDA-Public Use
  Company Number: US-ROXANE LABORATORIES, INC.-2011-RO-01145RO

PATIENT
  Sex: Female

DRUGS (21)
  1. DEPO-PROVERA [Concomitant]
     Indication: UTERINE HAEMORRHAGE
     Route: 030
  2. SYMBICORT [Concomitant]
     Indication: ASTHMA
     Route: 055
  3. ELAVIL [Concomitant]
     Indication: POST-TRAUMATIC STRESS DISORDER
  4. XOPENEX HFA [Concomitant]
     Indication: ASTHMA
     Route: 055
  5. ACETAMINOPHEN [Concomitant]
     Route: 048
  6. PROTONIX [Concomitant]
     Indication: HIATUS HERNIA
  7. IMURAN [Concomitant]
     Indication: CROHN'S DISEASE
  8. NYQUIL [Concomitant]
     Indication: BRONCHITIS
  9. PHENERGAN HCL [Concomitant]
     Indication: VOMITING
  10. BUTORPHANOL TARATRATE [Suspect]
     Indication: PAIN
  11. ZANAFLEX [Concomitant]
     Indication: PAIN
     Route: 048
  12. PROTONIX [Concomitant]
     Indication: GASTROOESOPHAGEAL REFLUX DISEASE
  13. ELAVIL [Concomitant]
     Indication: BIPOLAR DISORDER
  14. WARFARIN SODIUM [Concomitant]
     Indication: THROMBOSIS
  15. CLONAZEPAM [Concomitant]
     Indication: SLEEP DISORDER
  16. MENSTRUAL PAIN RELIEF [Concomitant]
  17. ELAVIL [Concomitant]
     Indication: DEPRESSION
  18. FIORICET [Concomitant]
     Indication: MIGRAINE
     Route: 048
  19. BUTORPHANOL TARATRATE [Suspect]
     Indication: MIGRAINE
     Route: 055
  20. CATAPRES [Concomitant]
     Indication: HYPERTENSION
  21. PHENERGAN HCL [Concomitant]
     Indication: NAUSEA
     Route: 030

REACTIONS (1)
  - DRUG INEFFECTIVE [None]
